FAERS Safety Report 9271165 (Version 1)
Quarter: 2013Q2

REPORT INFORMATION
  Report Type: Spontaneous
  Country: US (occurrence: US)
  Receive Date: 20130506
  Receipt Date: 20130506
  Transmission Date: 20140414
  Serious: No
  Sender: FDA-Public Use
  Company Number: PHEH2013US009813

PATIENT
  Age: 83 Year
  Sex: Male

DRUGS (20)
  1. TASIGNA [Suspect]
     Indication: CHRONIC MYELOID LEUKAEMIA
     Dosage: 600 MG, QD
     Route: 048
     Dates: start: 20120829
  2. ANTIBIOTICS [Concomitant]
     Indication: LOCALISED INFECTION
  3. ALLOPURINOL [Concomitant]
     Route: 048
  4. ATENOLOL [Concomitant]
     Dosage: 50 MG, QD
     Route: 048
  5. ATORVASTATIN CALCIUM [Concomitant]
  6. AVAPRO [Concomitant]
     Dosage: 300 MG, QD
     Route: 048
  7. CIPROFLOXACIN [Concomitant]
     Route: 048
  8. COLCRYS [Concomitant]
     Route: 048
  9. DIGOXIN [Concomitant]
     Dosage: 250 MG, QD
     Route: 048
  10. DOXYCYCLINE [Concomitant]
     Route: 048
  11. FENOFIBRATE [Concomitant]
     Dosage: 200 MG, QD
     Route: 048
  12. FISH OIL NATURE MADE [Concomitant]
     Dosage: 1 DF, QD
     Route: 048
  13. LASIX [Concomitant]
     Dosage: 40 MG, QD
     Route: 048
  14. LOPERAMIDE [Concomitant]
     Route: 048
  15. METRONIDAZOLE [Concomitant]
     Route: 048
  16. MINOCYCLINE [Concomitant]
  17. PLAVIX [Concomitant]
  18. SUCRALFATE [Concomitant]
     Route: 048
  19. SULFAMETHOXAZOLE AND TRIMETHOPRIM [Concomitant]
  20. SYMBICORT [Concomitant]
     Dosage: 1 DF, UNK

REACTIONS (4)
  - Feeling abnormal [Recovered/Resolved]
  - Weight decreased [Recovered/Resolved]
  - Diarrhoea [Recovered/Resolved]
  - Decreased appetite [Recovered/Resolved]
